FAERS Safety Report 4946549-4 (Version None)
Quarter: 2006Q1

REPORT INFORMATION
  Report Type: 
  Country: None (occurrence: None)
  Receive Date: 20060317
  Receipt Date: 20060228
  Transmission Date: 20060701
  Serious: Yes (Hospitalization)
  Sender: FDA-Public Use
  Company Number: MX-GLAXOSMITHKLINE-A0595796A

PATIENT
  Age: 36 Year
  Sex: Male

DRUGS (5)
  1. ZOFRAN [Suspect]
     Indication: PROPHYLAXIS
     Dosage: 8MG PER DAY
     Route: 042
     Dates: start: 20060214, end: 20060214
  2. VINBLASTINE [Concomitant]
     Indication: HODGKIN'S DISEASE
  3. BLEOMYCIN [Concomitant]
  4. DOXORUBICIN HCL [Concomitant]
  5. DACARBAZINE [Concomitant]

REACTIONS (4)
  - BURNING SENSATION [None]
  - RASH ERYTHEMATOUS [None]
  - RASH PAPULAR [None]
  - RASH PRURITIC [None]
